FAERS Safety Report 6371046-1 (Version None)
Quarter: 2009Q3

REPORT INFORMATION
  Report Type: 
  Country: None (occurrence: None)
  Receive Date: 20090923
  Receipt Date: 20090911
  Transmission Date: 20100115
  Serious: Yes (Other)
  Sender: FDA-Public Use
  Company Number: JP-PFIZER INC-2009269434

PATIENT
  Age: 4 Year

DRUGS (2)
  1. GENOTROPIN [Suspect]
     Indication: SMALL FOR DATES BABY
     Dosage: 0.6 MG, DAILY
     Route: 058
     Dates: start: 20090323
  2. GENOTROPIN [Suspect]
     Indication: BODY HEIGHT BELOW NORMAL

REACTIONS (1)
  - FEBRILE CONVULSION [None]
